FAERS Safety Report 10379537 (Version 1)
Quarter: 2014Q3

REPORT INFORMATION
  Report Type: Spontaneous
  Country: DE (occurrence: None)
  Receive Date: 20140808
  Receipt Date: 20140808
  Transmission Date: 20150326
  Serious: Yes (Hospitalization, Other)
  Sender: FDA-Public Use
  Company Number: DE-20140128

PATIENT
  Age: 54 Year
  Sex: Female

DRUGS (1)
  1. DOTAREM [Suspect]
     Active Substance: GADOTERATE MEGLUMINE
     Indication: NUCLEAR MAGNETIC RESONANCE IMAGING BRAIN
     Dosage: (NOT OTHERWISE SPECIFIED)
     Route: 042
     Dates: start: 20140724, end: 20140724

REACTIONS (4)
  - Sense of oppression [None]
  - Hypoaesthesia oral [None]
  - Cough [None]
  - Hypersensitivity [None]

NARRATIVE: CASE EVENT DATE: 20140724
